FAERS Safety Report 21591593 (Version 2)
Quarter: 2022Q4

REPORT INFORMATION
  Report Type: Spontaneous
  Country: IT (occurrence: IT)
  Receive Date: 20221114
  Receipt Date: 20221117
  Transmission Date: 20230113
  Serious: Yes (Life-Threatening)
  Sender: FDA-Public Use
  Company Number: IT-MINISAL02-892642

PATIENT
  Age: 60 Year
  Sex: Female

DRUGS (2)
  1. KIOVIG [Suspect]
     Active Substance: HUMAN IMMUNOGLOBULIN G
     Indication: Multifocal motor neuropathy
     Dosage: 30 GRAM, Q6HR
     Route: 042
     Dates: start: 20221027, end: 20221027
  2. KIOVIG [Suspect]
     Active Substance: HUMAN IMMUNOGLOBULIN G
     Dosage: 30 GRAM
     Route: 042
     Dates: start: 20221027, end: 20221028

REACTIONS (1)
  - Acute respiratory failure [Recovering/Resolving]

NARRATIVE: CASE EVENT DATE: 20221027
